FAERS Safety Report 19562017 (Version 1)
Quarter: 2021Q3

REPORT INFORMATION
  Report Type: Spontaneous
  Country: US (occurrence: US)
  Receive Date: 20210714
  Receipt Date: 20210714
  Transmission Date: 20211014
  Serious: No
  Sender: FDA-Public Use
  Company Number: US-MYLANLABS-2021M1034013

PATIENT
  Sex: Female
  Weight: 89 kg

DRUGS (1)
  1. ESTRADIOL VAGINAL CREAM USP [Suspect]
     Active Substance: ESTRADIOL
     Indication: PELVIC DEFORMITY
     Dosage: 1 GRAM ONCE DAILY FOR ONE WEEK THEN 1 GRAM ONCE OR TWICE WEEKLY
     Route: 067
     Dates: end: 20210608

REACTIONS (2)
  - Device difficult to use [Not Recovered/Not Resolved]
  - Product packaging issue [Not Recovered/Not Resolved]
